FAERS Safety Report 4509623-2 (Version None)
Quarter: 2004Q4

REPORT INFORMATION
  Report Type: 
  Country: None (occurrence: None)
  Receive Date: 20041124
  Receipt Date: 20030821
  Transmission Date: 20050328
  Serious: No
  Sender: FDA-Public Use
  Company Number: US-BRISTOL-MYERS SQUIBB COMPANY-12362836

PATIENT
  Age: 62 Year
  Sex: Male
  Weight: 88 kg

DRUGS (13)
  1. AVALIDE [Suspect]
     Indication: HYPERTENSION
     Dosage: DOSE: 300MG/12.5MG TWO TABS DAILY
     Route: 048
     Dates: start: 20030813
  2. DDAVP [Concomitant]
  3. LEVOTHYROID [Concomitant]
  4. LIPITOR [Concomitant]
  5. HYDROCORTISONE [Concomitant]
  6. HYDROCORTONE [Concomitant]
  7. GENOTROPIN [Concomitant]
  8. ANDROGEL [Concomitant]
  9. RANITIDINE [Concomitant]
  10. METAMUCIL-2 [Concomitant]
  11. MULTI-VITAMIN [Concomitant]
  12. ASPIRIN [Concomitant]
  13. TYLENOL PM [Concomitant]

REACTIONS (2)
  - BLOOD PRESSURE INCREASED [None]
  - INSOMNIA [None]
